FAERS Safety Report 7534597-X (Version None)
Quarter: 2011Q2

REPORT INFORMATION
  Report Type: 
  Country: None (occurrence: None)
  Receive Date: 20110609
  Receipt Date: 20100317
  Transmission Date: 20111010
  Serious: Yes (Hospitalization, Other)
  Sender: FDA-Public Use
  Company Number: PHHY2009DE10727

PATIENT
  Sex: Female
  Weight: 65 kg

DRUGS (18)
  1. VENLAFAXINE HCL [Concomitant]
     Dosage: 75 OT, UNK
     Dates: start: 20080401
  2. FEMARA [Concomitant]
     Dosage: 2.5 OT, UNK
     Dates: start: 20080401
  3. TRAMADOL HYDROCHLORIDE [Concomitant]
  4. HERCEPTIN [Concomitant]
  5. BISOPROLOL FUMARATE [Concomitant]
     Dosage: 2.5 OT, UNK
     Dates: start: 20080401
  6. FASLODEX [Concomitant]
     Dates: start: 20090130, end: 20090430
  7. ANTIHYPERTENSIVES [Concomitant]
  8. ASTONIN [Concomitant]
     Dosage: 0.1 OT, UNK
     Dates: start: 19960401
  9. DIPYRONE TAB [Concomitant]
  10. LASIX [Concomitant]
  11. TYKERB [Concomitant]
     Dosage: 250 OT, UNK
     Dates: start: 20090515
  12. ZOMETA [Suspect]
     Route: 042
     Dates: start: 20080423
  13. CALCIUM CARBONATE [Concomitant]
     Dates: start: 20080401
  14. HYDROCORTISONE [Concomitant]
     Dosage: 60 OT, UNK
     Dates: start: 20080501
  15. LEVOTHYROXINE SODIUM [Concomitant]
     Dates: start: 19960401
  16. PANTOPRAZOLE [Concomitant]
     Dosage: 40 OT, UNK
     Dates: start: 20080501
  17. MCP [Concomitant]
  18. XELODA [Concomitant]
     Dosage: 500 OT, UNK
     Dates: start: 20090515

REACTIONS (9)
  - NEOPLASM MALIGNANT [None]
  - LEFT VENTRICULAR DYSFUNCTION [None]
  - HYPERVENTILATION [None]
  - METASTASES TO BONE [None]
  - FEMUR FRACTURE [None]
  - BONE PAIN [None]
  - METASTASES TO LYMPH NODES [None]
  - CIRCULATORY COLLAPSE [None]
  - METASTASES TO CENTRAL NERVOUS SYSTEM [None]
